FAERS Safety Report 6580326-6 (Version None)
Quarter: 2010Q1

REPORT INFORMATION
  Report Type: 
  Country: None (occurrence: None)
  Receive Date: 20100212
  Receipt Date: 20091221
  Transmission Date: 20100710
  Serious: No
  Sender: FDA-Public Use
  Company Number: US-ALLERGAN-0917556US

PATIENT
  Sex: Female

DRUGS (4)
  1. COMBIGAN [Suspect]
     Indication: GLAUCOMA
     Dosage: UNK
     Route: 047
  2. LUMIGAN [Concomitant]
     Indication: GLAUCOMA
  3. POTASSIUM [Concomitant]
  4. THALIZONE [Concomitant]

REACTIONS (1)
  - SOMNOLENCE [None]
